FAERS Safety Report 13749088 (Version 1)
Quarter: 2017Q3

REPORT INFORMATION
  Report Type: Spontaneous
  Country: US (occurrence: US)
  Receive Date: 20170713
  Receipt Date: 20170713
  Transmission Date: 20171127
  Serious: Yes (Hospitalization)
  Sender: FDA-Public Use
  Company Number: None

PATIENT
  Age: 58 Year
  Sex: Male
  Weight: 83.2 kg

DRUGS (2)
  1. CYTARABINE (63878) [Suspect]
     Active Substance: CYTARABINE
     Dates: end: 20170620
  2. ETOPOSIDE (VP-16) [Suspect]
     Active Substance: ETOPOSIDE
     Dates: end: 20170621

REACTIONS (10)
  - Muscular weakness [None]
  - Pyrexia [None]
  - White blood cell disorder [None]
  - Wound [None]
  - Tenderness [None]
  - Pain in extremity [None]
  - Erythema [None]
  - Haemoglobin decreased [None]
  - Decreased appetite [None]
  - Feeling hot [None]

NARRATIVE: CASE EVENT DATE: 20170628
